FAERS Safety Report 17448631 (Version 3)
Quarter: 2022Q3

REPORT INFORMATION
  Report Type: Other
  Country: GR (occurrence: None)
  Receive Date: 20200224
  Receipt Date: 20220905
  Transmission Date: 20221026
  Serious: Yes (Hospitalization)
  Sender: FDA-Public Use
  Company Number: GR-ROCHE-2464590

PATIENT
  Age: 71 Year
  Sex: Female
  Weight: 98 kg

DRUGS (14)
  1. CAPECITABINE [Suspect]
     Active Substance: CAPECITABINE
     Indication: Breast cancer metastatic
     Dosage: MOST RECENT DOSE PRIOR TO THE EVENT: 22/OCT/2018
     Route: 048
     Dates: start: 20180618, end: 20180709
  2. LAPATINIB [Suspect]
     Active Substance: LAPATINIB
     Indication: Breast cancer metastatic
     Dosage: MOST RECENT DOSE PRIOR TO THE EVENT: 14/NOV/2018
     Route: 048
     Dates: start: 20180723, end: 20181113
  3. LAPATINIB [Suspect]
     Active Substance: LAPATINIB
     Dosage: MOST RECENT DOSE PRIOR TO THE EVENT: 14/NOV/2018
     Route: 048
     Dates: start: 20180723, end: 20181113
  4. DOCETAXEL [Suspect]
     Active Substance: DOCETAXEL
     Indication: Breast cancer metastatic
     Dosage: MOST RECENT DOSE PRIOR TO THE EVENT: 17/NOV/2016
     Route: 042
     Dates: start: 20161025, end: 20161025
  5. PERTUZUMAB [Suspect]
     Active Substance: PERTUZUMAB
     Indication: Breast cancer metastatic
     Dosage: MOST RECENT DOSE PRIOR TO THE EVENT: 12/DEC/2016
     Route: 042
     Dates: start: 20161117, end: 20161117
  6. TRASTUZUMAB [Suspect]
     Active Substance: TRASTUZUMAB
     Indication: Breast cancer metastatic
     Dosage: MOST RECENT DOSE PRIOR TO THE EVENT: 10/MAY/2019
     Route: 041
     Dates: start: 20161025, end: 20161025
  7. GEMCITABINE [Suspect]
     Active Substance: GEMCITABINE
     Indication: Breast cancer metastatic
     Route: 042
     Dates: start: 20190510
  8. GEMCITABINE [Suspect]
     Active Substance: GEMCITABINE
     Dosage: MOST RECENT DOSE PRIOR TO THE EVENT: 28/AUG/2019
     Route: 042
     Dates: start: 20190724, end: 20190821
  9. ADO-TRASTUZUMAB EMTANSINE [Suspect]
     Active Substance: ADO-TRASTUZUMAB EMTANSINE
     Indication: Breast cancer metastatic
     Route: 042
     Dates: start: 20170726, end: 20180504
  10. ACETAMINOPHEN\CODEINE PHOSPHATE [Concomitant]
     Active Substance: ACETAMINOPHEN\CODEINE PHOSPHATE
     Dosage: ONGOING = CHECKED
  11. LEVOTHYROXINE [Concomitant]
     Active Substance: LEVOTHYROXINE
     Dosage: ONGOING = CHECKED
     Dates: start: 20090615
  12. LEVOTHYROXINE [Concomitant]
     Active Substance: LEVOTHYROXINE
     Dosage: ONGOING = CHECKED
     Dates: start: 20090615
  13. CALCIUM CARBONATE\CHOLECALCIFEROL [Concomitant]
     Active Substance: CALCIUM CARBONATE\CHOLECALCIFEROL
     Dosage: ONGOING = CHECKED
     Dates: start: 20171218
  14. ZOMETA [Concomitant]
     Active Substance: ZOLEDRONIC ACID
     Dosage: ONGOING = CHECKED
     Dates: start: 20161018

REACTIONS (1)
  - Cerebrovascular accident [Recovered/Resolved]

NARRATIVE: CASE EVENT DATE: 20190915
